APPROVED DRUG PRODUCT: SULAR
Active Ingredient: NISOLDIPINE
Strength: 34MG
Dosage Form/Route: TABLET, EXTENDED RELEASE;ORAL
Application: N020356 | Product #005 | TE Code: AB
Applicant: COVIS PHARMA GMBH
Approved: Jan 2, 2008 | RLD: Yes | RS: Yes | Type: RX